FAERS Safety Report 9285669 (Version 3)
Quarter: 2013Q2

REPORT INFORMATION
  Report Type: Spontaneous
  Country: IL (occurrence: IL)
  Receive Date: 20130513
  Receipt Date: 20130526
  Transmission Date: 20140414
  Serious: Yes (Death, Hospitalization)
  Sender: FDA-Public Use
  Company Number: IL-US-EMD SERONO, INC.-7209524

PATIENT
  Age: 38 Year
  Sex: Male

DRUGS (1)
  1. REBIF [Suspect]
     Indication: RELAPSING-REMITTING MULTIPLE SCLEROSIS
     Route: 058
     Dates: start: 2005, end: 20130323

REACTIONS (3)
  - Sepsis [Fatal]
  - Cognitive disorder [Not Recovered/Not Resolved]
  - Decubitus ulcer [Not Recovered/Not Resolved]
